FAERS Safety Report 15899020 (Version 1)
Quarter: 2019Q1

REPORT INFORMATION
  Report Type: Spontaneous
  Country: KR (occurrence: KR)
  Receive Date: 20190201
  Receipt Date: 20190201
  Transmission Date: 20190417
  Serious: Yes (Other)
  Sender: FDA-Public Use
  Company Number: KR-GLAXOSMITHKLINE-KR2019GSK013902

PATIENT
  Age: 8 Month

DRUGS (2)
  1. VENTOLIN [Suspect]
     Active Substance: ALBUTEROL SULFATE
     Indication: PRODUCT USED FOR UNKNOWN INDICATION
     Dosage: 2.5 MG, TID
     Dates: start: 20190118
  2. PULMICAN [Concomitant]
     Indication: PRODUCT USED FOR UNKNOWN INDICATION
     Dosage: UNK UNK, TID

REACTIONS (4)
  - Product administered to patient of inappropriate age [Unknown]
  - Congenital central nervous system anomaly [Unknown]
  - Off label use [Unknown]
  - Tremor [Recovered/Resolved]
